FAERS Safety Report 8031400-9 (Version None)
Quarter: 2011Q4

REPORT INFORMATION
  Report Type: 
  Country: None (occurrence: None)
  Receive Date: 20111201
  Receipt Date: 20110809
  Transmission Date: 20120403
  Serious: Yes (Other)
  Sender: FDA-Public Use
  Company Number: 296098USA

PATIENT
  Sex: Female

DRUGS (1)
  1. CAMILA [Suspect]
     Indication: CONTRACEPTION
     Dosage: (0.35 MG), ORAL
     Route: 048

REACTIONS (2)
  - ECTOPIC PREGNANCY [None]
  - PREGNANCY ON ORAL CONTRACEPTIVE [None]
